FAERS Safety Report 23418763 (Version 1)
Quarter: 2024Q1

REPORT INFORMATION
  Report Type: Spontaneous
  Country: DE (occurrence: DE)
  Receive Date: 20240118
  Receipt Date: 20240118
  Transmission Date: 20240410
  Serious: Yes (Other)
  Sender: FDA-Public Use
  Company Number: DE-ABBVIE-5428344

PATIENT
  Age: 47 Year
  Sex: Male
  Weight: 102 kg

DRUGS (2)
  1. ADALIMUMAB [Suspect]
     Active Substance: ADALIMUMAB\ISOPROPYL ALCOHOL
     Indication: Psoriasis
     Dosage: 40.000MG
     Route: 058
     Dates: start: 2008, end: 2008
  2. STELARA [Concomitant]
     Active Substance: USTEKINUMAB
     Indication: Product used for unknown indication
     Dosage: 90 MG
     Route: 065
     Dates: start: 20100628

REACTIONS (11)
  - Glaucoma [Unknown]
  - Shoulder operation [Unknown]
  - Knee operation [Unknown]
  - Basal cell carcinoma [Unknown]
  - Skin papilloma [Unknown]
  - Essential hypertension [Unknown]
  - Actinic keratosis [Recovered/Resolved]
  - Type 2 diabetes mellitus [Unknown]
  - Actinic keratosis [Unknown]
  - Hypertension [Unknown]
  - Drug ineffective [Unknown]

NARRATIVE: CASE EVENT DATE: 20080101
